FAERS Safety Report 8236122-7 (Version None)
Quarter: 2012Q1

REPORT INFORMATION
  Report Type: 
  Country: None (occurrence: None)
  Receive Date: 20120327
  Receipt Date: 20120319
  Transmission Date: 20120608
  Serious: No
  Sender: FDA-Public Use
  Company Number: US-BIOGENIDEC-2011BI029222

PATIENT
  Sex: Female

DRUGS (1)
  1. TYSABRI [Suspect]
     Indication: MULTIPLE SCLEROSIS
     Route: 042
     Dates: start: 20080523, end: 20111025

REACTIONS (19)
  - INTERVERTEBRAL DISC DEGENERATION [None]
  - STRESS [None]
  - CELLULITIS [None]
  - CENTRAL NERVOUS SYSTEM LESION [None]
  - BACK PAIN [None]
  - ARTHRITIS [None]
  - LIMB INJURY [None]
  - PERONEAL NERVE PALSY [None]
  - COGNITIVE DISORDER [None]
  - OSTEOPOROSIS [None]
  - SCIATICA [None]
  - FALL [None]
  - NAUSEA [None]
  - VOMITING [None]
  - SPINAL DISORDER [None]
  - HYPOAESTHESIA [None]
  - WEIGHT DECREASED [None]
  - INTERVERTEBRAL DISC PROTRUSION [None]
  - GAIT DISTURBANCE [None]
